FAERS Safety Report 13670934 (Version 1)
Quarter: 2017Q2

REPORT INFORMATION
  Report Type: Spontaneous
  Country: US (occurrence: US)
  Receive Date: 20170620
  Receipt Date: 20170620
  Transmission Date: 20170830
  Serious: No
  Sender: FDA-Public Use
  Company Number: US-ROCHE-1395697

PATIENT
  Sex: Female

DRUGS (6)
  1. DILTIAZEM. [Concomitant]
     Active Substance: DILTIAZEM
  2. LEVOTHYROXINE. [Concomitant]
     Active Substance: LEVOTHYROXINE
  3. XELODA [Suspect]
     Active Substance: CAPECITABINE
     Indication: GASTRIC CANCER
     Dosage: 3 TABLETS EVERY MORNING AND 2 TABLETS EVERY EVENING
     Route: 048
     Dates: start: 20130704
  4. XELODA [Suspect]
     Active Substance: CAPECITABINE
     Dosage: EVERY EVEVNING FOR 7 DAYS EVERY 2 WKS
     Route: 048
     Dates: start: 20140314
  5. CALTRATE [Concomitant]
     Active Substance: CALCIUM CARBONATE
  6. XELODA [Suspect]
     Active Substance: CAPECITABINE
     Dosage: EVERY MORNING FOR 7 DAYS EVERY 2 WKS
     Route: 048
     Dates: start: 20140314

REACTIONS (1)
  - Abdominal pain upper [Not Recovered/Not Resolved]
